FAERS Safety Report 7739532-7 (Version None)
Quarter: 2011Q3

REPORT INFORMATION
  Report Type: 
  Country: None (occurrence: None)
  Receive Date: 20110909
  Receipt Date: 20110831
  Transmission Date: 20111222
  Serious: Yes (Other)
  Sender: FDA-Public Use
  Company Number: BR-PFIZER INC-2011205682

PATIENT
  Sex: Male

DRUGS (6)
  1. SUTENT [Suspect]
     Indication: RENAL CELL CARCINOMA
     Dosage: 50 MG, 1X/DAY
     Dates: start: 20100805
  2. OMEPRAZOLE [Concomitant]
     Dosage: 20 MG FASTING
     Route: 048
     Dates: start: 20100805, end: 20100905
  3. CODEINE PHOSPHATE AND ACETAMINOPHEN [Concomitant]
     Dosage: 530 MG, 4X/DAY (EVERY 6 HOURS)
     Route: 048
     Dates: start: 20100805
  4. METOCLOPRAMIDE [Concomitant]
     Dosage: 10 MG, 4X/DAY (EVERY 6 HOURS), AS NEEDED
     Route: 048
     Dates: start: 20100805, end: 20100905
  5. DIPYRONE TAB [Concomitant]
     Dosage: 40 DROPS, EVERY 4 HOURS, AS NEEDED
     Route: 048
     Dates: start: 20100805
  6. BROMOPRIDE [Concomitant]
     Dosage: 10 MG, BEFORE MEALS
     Route: 048
     Dates: start: 20100805, end: 20100905

REACTIONS (4)
  - LEUKOPENIA [None]
  - NEUTROPENIA [None]
  - ANAEMIA [None]
  - BLOOD LACTATE DEHYDROGENASE INCREASED [None]
